FAERS Safety Report 16974271 (Version 2)
Quarter: 2020Q1

REPORT INFORMATION
  Report Type: Spontaneous
  Country: FR (occurrence: FR)
  Receive Date: 20191030
  Receipt Date: 20200106
  Transmission Date: 20200409
  Serious: Yes (Hospitalization)
  Sender: FDA-Public Use
  Company Number: FR-TEVA-2019-FR-1129408

PATIENT
  Age: 11 Month
  Sex: Female
  Weight: 9.5 kg

DRUGS (1)
  1. AMOXICILLINE [Suspect]
     Active Substance: AMOXICILLIN
     Indication: BRONCHITIS
     Dosage: 1 DOSE WEIGHT 3 TIMES/J 3 DOSAGE FORMS
     Route: 048
     Dates: start: 20190831, end: 201909

REACTIONS (2)
  - Pyrexia [Recovered/Resolved]
  - Rash pruritic [Recovering/Resolving]

NARRATIVE: CASE EVENT DATE: 20190909
